FAERS Safety Report 8818901 (Version 1)
Quarter: 2012Q4

REPORT INFORMATION
  Report Type: 
  Country: US (occurrence: US)
  Receive Date: 20121001
  Receipt Date: 20121001
  Transmission Date: 20130627
  Serious: No
  Sender: FDA-Public Use
  Company Number: PHEH2012US018758

PATIENT
  Sex: Male

DRUGS (3)
  1. TASIGNA [Suspect]
     Dosage: 400 mg, BID
     Route: 048
  2. PROZAC [Concomitant]
  3. ALPRAZ [Concomitant]

REACTIONS (1)
  - Malaise [Unknown]
